FAERS Safety Report 20763906 (Version 4)
Quarter: 2022Q4

REPORT INFORMATION
  Report Type: Spontaneous
  Country: US (occurrence: US)
  Receive Date: 20220428
  Receipt Date: 20221003
  Transmission Date: 20230113
  Serious: Yes (Other)
  Sender: FDA-Public Use
  Company Number: US-BAYER-2022A055519

PATIENT
  Age: 42 Year
  Sex: Male

DRUGS (5)
  1. JIVI [Suspect]
     Active Substance: DAMOCTOCOG ALFA PEGOL
     Dosage: 3000 IU, PRN
     Route: 042
  2. JIVI [Suspect]
     Active Substance: DAMOCTOCOG ALFA PEGOL
     Dosage: 3000 IU, ONCE - TO TREAT BLEEDING UPON ENDOSCOPY PROCEDURE
     Route: 042
     Dates: start: 20220331, end: 20220331
  3. JIVI [Suspect]
     Active Substance: DAMOCTOCOG ALFA PEGOL
     Dosage: 3000 IU, ONCE - TO TREAT BLEEDING UPON JAMMED FINGER BLEEDING
     Route: 042
     Dates: start: 20220413, end: 20220413
  4. JIVI [Suspect]
     Active Substance: DAMOCTOCOG ALFA PEGOL
     Dosage: 4 DF, FOR THE ANKLE BLEED TREATMENT
  5. JIVI [Suspect]
     Active Substance: DAMOCTOCOG ALFA PEGOL
     Dosage: 2 DF, ONCE FOR JAMMED LEFT HAND FINGER
     Dates: start: 202209, end: 202209

REACTIONS (5)
  - Haemorrhage [Recovered/Resolved]
  - Haemarthrosis [None]
  - Limb injury [Recovered/Resolved]
  - Traumatic haemorrhage [Recovered/Resolved]
  - Limb injury [Recovered/Resolved]

NARRATIVE: CASE EVENT DATE: 20220331
